FAERS Safety Report 11414830 (Version 4)
Quarter: 2015Q4

REPORT INFORMATION
  Report Type: Report from Study
  Country: US (occurrence: US)
  Receive Date: 20150825
  Receipt Date: 20151027
  Transmission Date: 20160304
  Serious: No
  Sender: FDA-Public Use
  Company Number: PHEH2014US025436

PATIENT
  Sex: Female

DRUGS (1)
  1. GILENYA [Suspect]
     Active Substance: FINGOLIMOD HYDROCHLORIDE
     Indication: MULTIPLE SCLEROSIS
     Dosage: UNK
     Route: 065
     Dates: start: 20141209

REACTIONS (9)
  - Memory impairment [Unknown]
  - Stress [Unknown]
  - Fatigue [Unknown]
  - Vitamin D decreased [Unknown]
  - Accidental overdose [Unknown]
  - Pain [Unknown]
  - Emotional disorder [Unknown]
  - Paraesthesia [Unknown]
  - Asthenia [Unknown]
